FAERS Safety Report 23350828 (Version 1)
Quarter: 2023Q4

REPORT INFORMATION
  Report Type: Spontaneous
  Country: CA (occurrence: CA)
  Receive Date: 20231229
  Receipt Date: 20231229
  Transmission Date: 20240109
  Serious: No
  Sender: FDA-Public Use
  Company Number: CA-PFIZER INC-202300450713

PATIENT
  Sex: Female

DRUGS (1)
  1. PAXLOVID [Suspect]
     Active Substance: NIRMATRELVIR\RITONAVIR
     Indication: COVID-19 treatment
     Dosage: UNK
     Dates: start: 202312, end: 202312

REACTIONS (5)
  - Oral discomfort [Recovered/Resolved]
  - Burning sensation mucosal [Recovered/Resolved]
  - Dysgeusia [Recovered/Resolved]
  - Product communication issue [Unknown]
  - Physical product label issue [Unknown]

NARRATIVE: CASE EVENT DATE: 20231201
